FAERS Safety Report 4465941-8 (Version None)
Quarter: 2004Q3

REPORT INFORMATION
  Report Type: 
  Country: None (occurrence: None)
  Receive Date: 20040930
  Receipt Date: 20040930
  Transmission Date: 20050211
  Serious: Yes (Life-Threatening, Hospitalization)
  Sender: FDA-Public Use
  Company Number: None

PATIENT
  Age: 36 Year
  Sex: Female
  Weight: 68.0396 kg

DRUGS (2)
  1. AVELOX [Suspect]
     Dates: start: 20040815, end: 20040818
  2. METHADONE HCL [Suspect]
     Indication: DRUG DEPENDENCE
     Dosage: 210MG PO ORAL
     Route: 048
     Dates: start: 20020607, end: 20040929

REACTIONS (3)
  - DRUG LEVEL INCREASED [None]
  - OVERDOSE [None]
  - SEDATION [None]
